FAERS Safety Report 20217177 (Version 1)
Quarter: 2021Q4

REPORT INFORMATION
  Report Type: Spontaneous
  Country: US (occurrence: None)
  Receive Date: 20211222
  Receipt Date: 20211222
  Transmission Date: 20220303
  Serious: No
  Sender: FDA-Public Use
  Company Number: None

PATIENT
  Age: 51 Year
  Sex: Female

DRUGS (1)
  1. AUBAGIO [Suspect]
     Active Substance: TERIFLUNOMIDE
     Dosage: FREQUENCY : DAILY;?
     Route: 048
     Dates: start: 202106, end: 202112

REACTIONS (3)
  - Diarrhoea [None]
  - Hypertension [None]
  - Therapy cessation [None]

NARRATIVE: CASE EVENT DATE: 20210601
